FAERS Safety Report 5624796-6 (Version None)
Quarter: 2008Q1

REPORT INFORMATION
  Report Type: 
  Country: None (occurrence: None)
  Receive Date: 20080213
  Receipt Date: 20080201
  Transmission Date: 20080703
  Serious: Yes (Congenital Anomaly)
  Sender: FDA-Public Use
  Company Number: US-ROCHE-545680

PATIENT
  Sex: Male
  Weight: 2.5 kg

DRUGS (2)
  1. ACCUTANE [Suspect]
     Indication: ACNE
     Dosage: REPORTED ONE PILL TAKEN
     Route: 064
  2. VITAMINS NOS [Concomitant]

REACTIONS (2)
  - MICROTIA [None]
  - TONSILLAR NEOPLASM BENIGN [None]
